FAERS Safety Report 10258733 (Version 2)
Quarter: 2014Q2

REPORT INFORMATION
  Report Type: Spontaneous
  Country: US (occurrence: US)
  Receive Date: 20140625
  Receipt Date: 20140625
  Transmission Date: 20141212
  Serious: No
  Sender: FDA-Public Use
  Company Number: US-ASTELLAS-2012US002318

PATIENT
  Age: 83 Year
  Sex: Male

DRUGS (9)
  1. VESICARE [Suspect]
     Indication: MICTURITION URGENCY
     Route: 048
     Dates: start: 2011
  2. VESICARE [Suspect]
     Indication: INCONTINENCE
     Route: 048
     Dates: start: 201109, end: 20130901
  3. SIMVASTATIN [Concomitant]
     Indication: BLOOD CHOLESTEROL
     Route: 048
  4. MELOXICAM [Concomitant]
     Indication: ARTHRITIS
     Route: 048
  5. OMEPRAZOLE [Concomitant]
     Indication: GASTROOESOPHAGEAL REFLUX DISEASE
     Route: 048
  6. ASPIRIN [Concomitant]
     Indication: CARDIAC DISORDER
     Route: 048
  7. TAMSULOSIN [Concomitant]
     Indication: PRODUCT USED FOR UNKNOWN INDICATION
     Dosage: 0.04 MG, ONCE DAILY
     Route: 048
  8. LISINOPRIL [Concomitant]
     Indication: BLOOD PRESSURE
     Route: 048
  9. TEMAZEPAM [Concomitant]
     Indication: SLEEP DISORDER
     Route: 048

REACTIONS (2)
  - Constipation [Recovered/Resolved]
  - Dry mouth [Unknown]
